FAERS Safety Report 15474321 (Version 2)
Quarter: 2019Q4

REPORT INFORMATION
  Report Type: Report from Study
  Country: SE (occurrence: SE)
  Receive Date: 20181008
  Receipt Date: 20191010
  Transmission Date: 20200122
  Serious: Yes (Death, Hospitalization, Other)
  Sender: FDA-Public Use
  Company Number: SE-JNJFOC-20180919973

PATIENT
  Age: 8 Decade
  Sex: Female

DRUGS (3)
  1. REMICADE [Suspect]
     Active Substance: INFLIXIMAB
     Indication: ANKYLOSING SPONDYLITIS
     Route: 042
     Dates: start: 20120814
  2. REMICADE [Suspect]
     Active Substance: INFLIXIMAB
     Indication: PSORIATIC ARTHROPATHY
     Route: 042
  3. WARAN [Concomitant]
     Active Substance: WARFARIN SODIUM
     Route: 065

REACTIONS (3)
  - Death [Fatal]
  - Uterine cancer [Not Recovered/Not Resolved]
  - Cervix carcinoma [Unknown]

NARRATIVE: CASE EVENT DATE: 201809
